FAERS Safety Report 20138804 (Version 2)
Quarter: 2022Q2

REPORT INFORMATION
  Report Type: Spontaneous
  Country: JP (occurrence: JP)
  Receive Date: 20211202
  Receipt Date: 20220429
  Transmission Date: 20220721
  Serious: No
  Sender: FDA-Public Use
  Company Number: JP-KYOWAKIRIN-2021AKK020316

PATIENT
  Age: 18 Year
  Sex: Female

DRUGS (2)
  1. ROMIPLOSTIM [Suspect]
     Active Substance: ROMIPLOSTIM
     Indication: Immune thrombocytopenia
     Dosage: 600 MICROGRAM, QWK
     Route: 058
     Dates: start: 20130930
  2. ELTROMBOPAG OLAMINE [Suspect]
     Active Substance: ELTROMBOPAG OLAMINE
     Indication: Immune thrombocytopenia
     Dosage: 50 MILLIGRAM
     Route: 048
     Dates: start: 20110426

REACTIONS (1)
  - Biopsy bone marrow abnormal [Not Recovered/Not Resolved]

NARRATIVE: CASE EVENT DATE: 20170807
